FAERS Safety Report 24841334 (Version 1)
Quarter: 2025Q1

REPORT INFORMATION
  Report Type: Spontaneous
  Country: JP (occurrence: JP)
  Receive Date: 20250114
  Receipt Date: 20250114
  Transmission Date: 20250409
  Serious: Yes (Disabling)
  Sender: ABBVIE
  Company Number: JP-ABBVIE-6080642

PATIENT

DRUGS (1)
  1. BOTULINUM TOXIN TYPE A [Suspect]
     Active Substance: BOTULINUM TOXIN TYPE A
     Indication: Product used for unknown indication
     Route: 030

REACTIONS (3)
  - Gait disturbance [Unknown]
  - Off label use [Unknown]
  - Muscular weakness [Unknown]
